FAERS Safety Report 8431942-8 (Version None)
Quarter: 2012Q2

REPORT INFORMATION
  Report Type: 
  Country: None (occurrence: None)
  Receive Date: 20120606
  Receipt Date: 20120521
  Transmission Date: 20120825
  Serious: Yes (Hospitalization, Other)
  Sender: FDA-Public Use
  Company Number: 2012MA006621

PATIENT
  Age: 55 Year
  Sex: Female
  Weight: 69 kg

DRUGS (3)
  1. FLUVOXAMINE MALEATE [Suspect]
     Dosage: 150 MG; PO
     Route: 048
  2. CLOZAPINE [Concomitant]
  3. VALPROATE SODIUM [Concomitant]

REACTIONS (5)
  - TACHYCARDIA [None]
  - DRUG INTERACTION [None]
  - LONG QT SYNDROME [None]
  - HYPOKALAEMIA [None]
  - TREATMENT NONCOMPLIANCE [None]
